FAERS Safety Report 4886612-X (Version None)
Quarter: 2006Q1

REPORT INFORMATION
  Report Type: 
  Country: None (occurrence: None)
  Receive Date: 20060119
  Receipt Date: 20060103
  Transmission Date: 20060701
  Serious: Yes (Hospitalization)
  Sender: FDA-Public Use
  Company Number: 310014M05FRA

PATIENT
  Age: 23 Year
  Sex: Female

DRUGS (6)
  1. GONAL-F [Suspect]
     Indication: OVULATION INDUCTION
     Dates: start: 20031201
  2. GONADOTROPHINE CHORIONIQUE ENDO 5000 IU (CHORIONIC GONADOTROPHIN) [Suspect]
     Indication: MYALGIA
     Dosage: ONCE; ONCE
     Dates: start: 20031001, end: 20031001
  3. GONADOTROPHINE CHORIONIQUE ENDO 5000 IU (CHORIONIC GONADOTROPHIN) [Suspect]
     Indication: MYALGIA
     Dosage: ONCE; ONCE
     Dates: start: 20031101, end: 20031101
  4. GONADOTROPHINE CHORIONIQUE ENDO 5000 IU (CHORIONIC GONADOTROPHIN) [Suspect]
     Indication: MYALGIA
     Dosage: ONCE; ONCE
     Dates: start: 20031201, end: 20031201
  5. CLOMID [Concomitant]
  6. ORLISTAT [Concomitant]

REACTIONS (3)
  - HYPERCALCAEMIA [None]
  - HYPERTRIGLYCERIDAEMIA [None]
  - PANCREATITIS ACUTE [None]
